FAERS Safety Report 10557606 (Version 6)
Quarter: 2018Q1

REPORT INFORMATION
  Report Type: Spontaneous
  Country: JP (occurrence: JP)
  Receive Date: 20141031
  Receipt Date: 20180209
  Transmission Date: 20180508
  Serious: Yes (Life-Threatening, Hospitalization, Disabling)
  Sender: FDA-Public Use
  Company Number: JP-SA-2014SA147242

PATIENT
  Age: 59 Year
  Sex: Male
  Weight: 61 kg

DRUGS (26)
  1. 5-FU [Suspect]
     Active Substance: FLUOROURACIL
     Indication: PANCREATIC CARCINOMA
     Route: 040
     Dates: start: 20141006, end: 20141006
  2. NEXIUM [Concomitant]
     Active Substance: ESOMEPRAZOLE MAGNESIUM
     Route: 065
     Dates: start: 20140920
  3. VANCOMYCIN [Concomitant]
     Active Substance: VANCOMYCIN
     Dates: start: 20141105, end: 20141107
  4. PRIMPERAN [Concomitant]
     Active Substance: METOCLOPRAMIDE HYDROCHLORIDE
     Dates: start: 20141014, end: 20141014
  5. EMEND [Concomitant]
     Active Substance: APREPITANT
     Dates: start: 20141006, end: 20141008
  6. OXINORM (JAPAN) [Concomitant]
     Active Substance: OXYCODONE HYDROCHLORIDE
     Dosage: POWDER
     Route: 065
     Dates: start: 20140925
  7. 5-FU [Suspect]
     Active Substance: FLUOROURACIL
     Indication: PANCREATIC CARCINOMA
     Route: 041
     Dates: start: 20141006, end: 20141006
  8. PRIMPERAN [Concomitant]
     Active Substance: METOCLOPRAMIDE HYDROCHLORIDE
     Dates: start: 20141006, end: 20141006
  9. OXYCONTIN [Concomitant]
     Active Substance: OXYCODONE HYDROCHLORIDE
     Dosage: SLOW RELEASE TABLET
     Dates: start: 20140929
  10. ALOSITOL [Concomitant]
     Active Substance: ALLOPURINOL
     Dates: start: 20141006, end: 20141017
  11. ROPION [Concomitant]
     Active Substance: FLURBIPROFEN AXETIL
     Dates: start: 20141023
  12. ZYVOX [Concomitant]
     Active Substance: LINEZOLID
     Dates: start: 20141107, end: 20141117
  13. CALCIUM LEVOFOLINATE [Suspect]
     Active Substance: LEVOLEUCOVORIN CALCIUM
     Indication: PANCREATIC CARCINOMA
     Route: 041
     Dates: start: 20141006, end: 20141006
  14. ALOXI [Concomitant]
     Active Substance: PALONOSETRON HYDROCHLORIDE
     Dates: start: 20141006, end: 20141006
  15. PRIMPERAN [Concomitant]
     Active Substance: METOCLOPRAMIDE HYDROCHLORIDE
     Dates: start: 20141007, end: 20141007
  16. CEFEPIME HYDROCHLORIDE. [Concomitant]
     Active Substance: CEFEPIME HYDROCHLORIDE
     Dates: start: 20141016, end: 20141027
  17. TEICOPLANIN [Concomitant]
     Active Substance: TEICOPLANIN
     Dates: start: 20141017, end: 20141121
  18. GRAN [Concomitant]
     Active Substance: FILGRASTIM
     Dates: start: 20141018, end: 20141018
  19. ATROPINE SULFATE. [Concomitant]
     Active Substance: ATROPINE SULFATE
     Dates: start: 20141006, end: 20141006
  20. DECADRON [Concomitant]
     Active Substance: DEXAMETHASONE
     Route: 065
     Dates: start: 20141006, end: 20141006
  21. LOXONIN [Concomitant]
     Active Substance: LOXOPROFEN SODIUM
     Route: 065
     Dates: start: 20140920
  22. NAUZELIN [Concomitant]
     Active Substance: DOMPERIDONE
     Dates: start: 20141011
  23. FINIBAX [Concomitant]
     Active Substance: DORIPENEM MONOHYDRATE
     Dates: start: 20141107, end: 20141117
  24. ELPLAT [Suspect]
     Active Substance: OXALIPLATIN
     Indication: PANCREATIC CARCINOMA
     Dosage: ELPLAT IV INFUSION SOLUTION INJECTION?86.4 MG/M2
     Route: 041
     Dates: start: 20141006, end: 20141006
  25. IRINOTECAN HYDROCHLORIDE. [Suspect]
     Active Substance: IRINOTECAN HYDROCHLORIDE
     Indication: PANCREATIC CARCINOMA
     Route: 041
     Dates: start: 20141006, end: 20141006
  26. FINIBAX [Concomitant]
     Active Substance: DORIPENEM MONOHYDRATE
     Dates: start: 20141028, end: 20141107

REACTIONS (15)
  - Lung infection [Recovered/Resolved with Sequelae]
  - Atelectasis [Unknown]
  - Pneumonia [Recovered/Resolved with Sequelae]
  - Septic shock [Recovering/Resolving]
  - White blood cell count decreased [Recovered/Resolved]
  - Platelet count decreased [Recovered/Resolved]
  - Disseminated intravascular coagulation [Recovering/Resolving]
  - Cholinergic syndrome [Unknown]
  - Infectious pleural effusion [Unknown]
  - Febrile neutropenia [Recovering/Resolving]
  - Vomiting [Unknown]
  - Neutrophil count decreased [Recovered/Resolved]
  - Nausea [Unknown]
  - Pulmonary alveolar haemorrhage [Recovered/Resolved with Sequelae]
  - Diarrhoea [Unknown]

NARRATIVE: CASE EVENT DATE: 20141006
